FAERS Safety Report 5754996-6 (Version None)
Quarter: 2008Q2

REPORT INFORMATION
  Report Type: 
  Country: None (occurrence: None)
  Receive Date: 20080529
  Receipt Date: 20080529
  Transmission Date: 20081010
  Serious: Yes (Life-Threatening, Hospitalization, Other)
  Sender: FDA-Public Use
  Company Number: None

PATIENT
  Age: 90 Year
  Sex: Female
  Weight: 41.7309 kg

DRUGS (1)
  1. DIGITEK   0.125 MG [Suspect]
     Indication: HEART RATE DECREASED
     Dosage: 0.125 MG  1 PER DAY PO
     Route: 048
     Dates: start: 20040101, end: 20080517

REACTIONS (9)
  - ASTHENIA [None]
  - CARDIAC FAILURE CONGESTIVE [None]
  - DIZZINESS [None]
  - HEADACHE [None]
  - HEART RATE DECREASED [None]
  - OEDEMA PERIPHERAL [None]
  - PAIN IN EXTREMITY [None]
  - PHARMACEUTICAL PRODUCT COMPLAINT [None]
  - SWELLING [None]
